FAERS Safety Report 10268526 (Version 1)
Quarter: 2014Q2

REPORT INFORMATION
  Report Type: Spontaneous
  Country: US (occurrence: None)
  Receive Date: 20140625
  Receipt Date: 20140625
  Transmission Date: 20141212
  Serious: Yes (Other)
  Sender: FDA-Public Use
  Company Number: 153317

PATIENT
  Age: 55 Year
  Sex: Female
  Weight: 43 kg

DRUGS (8)
  1. ADRIAMYCIN (DOXORUBICIN) INJ. USP 10MG/5ML - BEDFORD LABS, INC. [Suspect]
  2. DIPHENHYDRAMINE HYDROCHLORIDE [Concomitant]
  3. ACETAMINOPHEN [Concomitant]
  4. SOL-MELCORT [Concomitant]
  5. CYCLOPHOSPHAMIDE HYDRATE [Concomitant]
  6. VINCRISTINE SULFATE [Concomitant]
  7. PREDNISOLONE [Concomitant]
  8. METHOTREXATE [Concomitant]

REACTIONS (3)
  - Pharyngitis [None]
  - Rash [None]
  - Neutropenia [None]
